FAERS Safety Report 6698305-7 (Version None)
Quarter: 2010Q2

REPORT INFORMATION
  Report Type: 
  Country: None (occurrence: None)
  Receive Date: 20100427
  Receipt Date: 20100420
  Transmission Date: 20101027
  Serious: Yes (Hospitalization, Disabling)
  Sender: FDA-Public Use
  Company Number: ES-JNJFOC-20100405620

PATIENT
  Sex: Male

DRUGS (2)
  1. REMICADE [Suspect]
     Indication: PSORIASIS
     Dosage: 5TH INFUSION
     Route: 042
  2. REMICADE [Suspect]
     Route: 042

REACTIONS (2)
  - DYSSTASIA [None]
  - MYALGIA [None]
